FAERS Safety Report 21565931 (Version 2)
Quarter: 2023Q2

REPORT INFORMATION
  Report Type: Spontaneous
  Country: US (occurrence: US)
  Receive Date: 20221108
  Receipt Date: 20230609
  Transmission Date: 20230722
  Serious: No
  Sender: FDA-Public Use
  Company Number: US-LUPIN PHARMACEUTICALS INC.-2022-12997

PATIENT

DRUGS (1)
  1. ALBUTEROL SULFATE [Suspect]
     Active Substance: ALBUTEROL SULFATE
     Indication: Cystic fibrosis
     Dosage: 2 DOSAGE FORM, 2 PUFFS EVERY FOUR HOURS

REACTIONS (3)
  - Off label use [Unknown]
  - Product taste abnormal [Unknown]
  - Device delivery system issue [Unknown]
